FAERS Safety Report 7435927-X (Version None)
Quarter: 2011Q2

REPORT INFORMATION
  Report Type: 
  Country: None (occurrence: None)
  Receive Date: 20110425
  Receipt Date: 20110419
  Transmission Date: 20111010
  Serious: Yes (Other)
  Sender: FDA-Public Use
  Company Number: US-GILEAD-2010-0034514

PATIENT
  Sex: Male

DRUGS (2)
  1. LETAIRIS [Suspect]
     Indication: PULMONARY HYPERTENSION
     Route: 048
     Dates: start: 20101104
  2. LETAIRIS [Suspect]
     Indication: PULMONARY FIBROSIS

REACTIONS (1)
  - CONDITION AGGRAVATED [None]
